FAERS Safety Report 12805622 (Version 1)
Quarter: 2016Q4

REPORT INFORMATION
  Report Type: Spontaneous
  Country: US (occurrence: US)
  Receive Date: 20161002
  Receipt Date: 20161002
  Transmission Date: 20170207
  Serious: Yes (Life-Threatening)
  Sender: FDA-Public Use
  Company Number: None

PATIENT
  Age: 60 Year
  Sex: Female
  Weight: 58.5 kg

DRUGS (13)
  1. ALENDRONATE [Concomitant]
     Active Substance: ALENDRONATE SODIUM
  2. LACTULOSE. [Concomitant]
     Active Substance: LACTULOSE
  3. LACTOBACILLUS [Concomitant]
     Active Substance: LACTOBACILLUS ACIDOPHILUS
  4. MELATONIN [Concomitant]
     Active Substance: MELATONIN
  5. CINNAMON BARK [Concomitant]
  6. EZETIMIBE. [Concomitant]
     Active Substance: EZETIMIBE
  7. TRAMADOL. [Concomitant]
     Active Substance: TRAMADOL
  8. POLYETHYLENE GLYCOL [Concomitant]
     Active Substance: POLYETHYLENE GLYCOLS
  9. HYDROXYCHOLOROQ-UINE [Suspect]
     Active Substance: HYDROXYCHLOROQUINE
     Indication: RHEUMATOID ARTHRITIS
     Dosage: OTHER DAILY ORAL
     Route: 048
     Dates: start: 20160516, end: 20160613
  10. CYCLOBENZAPRINE [Concomitant]
     Active Substance: CYCLOBENZAPRINE
  11. DIAZEPAM. [Concomitant]
     Active Substance: DIAZEPAM
  12. OMEGA-3 ACID ETHYL ESTERS [Concomitant]
     Active Substance: OMEGA-3-ACID ETHYL ESTERS
  13. PREGABALIN. [Concomitant]
     Active Substance: PREGABALIN

REACTIONS (8)
  - Drug eruption [None]
  - Anorectal discomfort [None]
  - Nail disorder [None]
  - Urticaria [None]
  - Stevens-Johnson syndrome [None]
  - Burning sensation [None]
  - Muscle twitching [None]
  - Urine odour abnormal [None]

NARRATIVE: CASE EVENT DATE: 20160611
